FAERS Safety Report 24045345 (Version 1)
Quarter: 2024Q3

REPORT INFORMATION
  Report Type: Report from Study
  Country: IT (occurrence: IT)
  Receive Date: 20240703
  Receipt Date: 20240703
  Transmission Date: 20241016
  Serious: Yes (Other)
  Sender: MYLAN
  Company Number: IT-MYLANLABS-2024M1061000

PATIENT
  Age: 32 Year
  Sex: Male

DRUGS (5)
  1. PREDNISONE [Suspect]
     Active Substance: PREDNISONE
     Indication: Focal segmental glomerulosclerosis
     Dosage: 50 MILLIGRAM, TAPERING SCHEDULE
     Route: 048
  2. RITUXIMAB [Suspect]
     Active Substance: RITUXIMAB
     Indication: Focal segmental glomerulosclerosis
     Dosage: 375 MILLIGRAM/SQ. METER, EVERY 4?WEEKS
     Route: 065
  3. RITUXIMAB [Suspect]
     Active Substance: RITUXIMAB
     Dosage: 375 MILLIGRAM/SQ. METER, BIMONTHLY
     Route: 065
  4. CYCLOPHOSPHAMIDE [Suspect]
     Active Substance: CYCLOPHOSPHAMIDE
     Indication: Focal segmental glomerulosclerosis
     Dosage: 10 MILLIGRAM/KILOGRAM, TWO PULSES ON DAYS 4 AND 17
     Route: 065
  5. METHYLPREDNISOLONE [Suspect]
     Active Substance: METHYLPREDNISOLONE
     Indication: Focal segmental glomerulosclerosis
     Dosage: 15 MILLIGRAM/KILOGRAM,?THREE DOSES?
     Route: 042

REACTIONS (1)
  - Drug ineffective [Unknown]
